FAERS Safety Report 9680285 (Version 1)
Quarter: 2013Q4

REPORT INFORMATION
  Report Type: Spontaneous
  Country: ES (occurrence: ES)
  Receive Date: 20131111
  Receipt Date: 20131111
  Transmission Date: 20140711
  Serious: Yes (Hospitalization)
  Sender: FDA-Public Use
  Company Number: ES-ROCHE-1299092

PATIENT
  Age: 62 Year
  Sex: Female

DRUGS (11)
  1. MABTHERA [Suspect]
     Indication: NON-HODGKIN^S LYMPHOMA
     Route: 042
     Dates: start: 20130208, end: 20130209
  2. OXALIPLATIN [Suspect]
     Indication: NON-HODGKIN^S LYMPHOMA
     Route: 042
     Dates: start: 20130208, end: 20130209
  3. GEMCITABINE [Suspect]
     Indication: NON-HODGKIN^S LYMPHOMA
     Route: 042
     Dates: start: 20130208, end: 20130209
  4. HYDROCORTISONE [Concomitant]
     Route: 042
     Dates: start: 20130208, end: 20130208
  5. PARACETAMOL [Concomitant]
     Indication: PAIN
     Route: 042
     Dates: start: 20130208, end: 20130208
  6. FUROSEMIDE [Concomitant]
     Indication: HYPERTENSION
     Route: 042
     Dates: start: 20130207, end: 20130210
  7. INSULIN GLULISINE [Concomitant]
     Indication: DIABETES MELLITUS
     Route: 058
     Dates: start: 20130207
  8. RANITIDINE [Concomitant]
     Indication: PROPHYLAXIS AGAINST GASTROINTESTINAL ULCER
     Route: 048
     Dates: start: 20130207
  9. METHYLPREDNISOLONE [Concomitant]
     Route: 048
     Dates: start: 20130207
  10. INSULIN GLARGINE [Concomitant]
     Indication: DIABETES MELLITUS
     Route: 058
     Dates: start: 20130207
  11. ATORVASTATIN [Concomitant]
     Indication: DYSLIPIDAEMIA
     Route: 048
     Dates: start: 2012

REACTIONS (1)
  - Hepatitis cholestatic [Recovered/Resolved]
